FAERS Safety Report 22661907 (Version 1)
Quarter: 2023Q2

REPORT INFORMATION
  Report Type: Spontaneous
  Country: US (occurrence: US)
  Receive Date: 20230630
  Receipt Date: 20230630
  Transmission Date: 20230722
  Serious: Yes (Other)
  Sender: FDA-Public Use
  Company Number: US-BRISTOL-MYERS SQUIBB COMPANY-2023-091909

PATIENT
  Age: 71 Year
  Sex: Female

DRUGS (2)
  1. NIVOLUMAB [Suspect]
     Active Substance: NIVOLUMAB
     Indication: Malignant melanoma
  2. NIVOLUMAB [Suspect]
     Active Substance: NIVOLUMAB
     Indication: Ovarian cancer

REACTIONS (2)
  - Encephalitis [Recovering/Resolving]
  - Ataxia [Recovering/Resolving]
